FAERS Safety Report 19254927 (Version 2)
Quarter: 2021Q2

REPORT INFORMATION
  Report Type: Spontaneous
  Country: GB (occurrence: GB)
  Receive Date: 20210513
  Receipt Date: 20210519
  Transmission Date: 20210717
  Serious: Yes (Hospitalization, Other)
  Sender: FDA-Public Use
  Company Number: GB-AUROBINDO-AUR-APL-2021-019081

PATIENT
  Age: 26 Year
  Sex: Female
  Weight: 44 kg

DRUGS (1)
  1. PARACETAMOL [Suspect]
     Active Substance: ACETAMINOPHEN
     Indication: TENSION HEADACHE
     Dosage: 1 GRAM, FOUR TIMES/DAY
     Route: 065

REACTIONS (8)
  - Abdominal pain lower [Recovering/Resolving]
  - Dehydration [Recovering/Resolving]
  - Toxicity to various agents [Recovering/Resolving]
  - Condition aggravated [Recovering/Resolving]
  - Vomiting [Recovering/Resolving]
  - Liver function test abnormal [Recovering/Resolving]
  - Hyperemesis gravidarum [Recovering/Resolving]
  - Exposure during pregnancy [Recovering/Resolving]
